FAERS Safety Report 8950997 (Version 1)
Quarter: 2012Q4

REPORT INFORMATION
  Report Type: Spontaneous
  Country: DK (occurrence: None)
  Receive Date: 20121129
  Receipt Date: 20121129
  Transmission Date: 20130627
  Serious: Yes (Other)
  Sender: FDA-Public Use
  Company Number: 2012MA013588

PATIENT
  Age: 44 Year
  Sex: Male

DRUGS (3)
  1. CITALOPRAM HYDROBROMIDE TABLETS, 40 MG (PUREPAC) [Suspect]
     Indication: OBSESSIVE-COMPULSIVE DISORDER
     Route: 048
     Dates: start: 201112, end: 20121009
  2. PROPRANOLOL HCL [Suspect]
     Indication: DRUG USE FOR UNKNOWN INDICATION
  3. TEGRETOL [Concomitant]

REACTIONS (1)
  - Electrocardiogram QT prolonged [None]
